FAERS Safety Report 6500505-3 (Version None)
Quarter: 2009Q4

REPORT INFORMATION
  Report Type: 
  Country: None (occurrence: None)
  Receive Date: 20091216
  Receipt Date: 20091203
  Transmission Date: 20100525
  Serious: Yes (Other)
  Sender: FDA-Public Use
  Company Number: US-SANOFI-AVENTIS-A03200904647

PATIENT
  Age: 80 Year
  Sex: Female
  Weight: 64 kg

DRUGS (6)
  1. DRONEDARONE [Suspect]
     Indication: ATRIAL FIBRILLATION
     Dosage: UNIT DOSE: 400 MG
     Route: 048
     Dates: start: 20090915, end: 20091004
  2. DRONEDARONE [Suspect]
     Indication: ATRIAL FLUTTER
     Dosage: UNIT DOSE: 400 MG
     Route: 048
     Dates: start: 20090915, end: 20091004
  3. COUMADIN [Concomitant]
     Indication: ATRIAL FIBRILLATION
     Route: 065
     Dates: start: 20070401
  4. DILAUDID [Concomitant]
     Dosage: EVERY 4 HOURS AS NEEDED POST OP FOR HIP REPLACEMENT
     Route: 065
     Dates: start: 20090731
  5. METOPROLOL [Concomitant]
     Indication: ATRIAL FIBRILLATION
     Route: 065
     Dates: start: 20090701, end: 20091020
  6. METOPROLOL [Concomitant]
     Indication: HYPERTENSION
     Route: 065
     Dates: start: 20090701, end: 20091020

REACTIONS (5)
  - ANAPHYLACTIC REACTION [None]
  - ARRHYTHMIA [None]
  - BRONCHOSPASM [None]
  - DIARRHOEA [None]
  - OEDEMA [None]
